FAERS Safety Report 5304960-6 (Version None)
Quarter: 2007Q2

REPORT INFORMATION
  Report Type: 
  Country: None (occurrence: None)
  Receive Date: 20070423
  Receipt Date: 20070411
  Transmission Date: 20071010
  Serious: Yes (Hospitalization)
  Sender: FDA-Public Use
  Company Number: TW-PFIZER INC-2007029034

PATIENT
  Age: 60 Year
  Sex: Female

DRUGS (4)
  1. LITHIUM CARBONATE [Suspect]
     Dosage: DAILY DOSE:600MG
  2. VALSARTAN [Interacting]
     Dosage: DAILY DOSE:80MG
  3. VALPROATE SODIUM [Concomitant]
     Dosage: DAILY DOSE:1500MG
  4. CLONAZEPAM [Concomitant]
     Dosage: DAILY DOSE:2MG

REACTIONS (3)
  - DRUG INTERACTION [None]
  - MANIA [None]
  - THERAPEUTIC AGENT TOXICITY [None]
